FAERS Safety Report 8033526 (Version 2)
Quarter: 2012Q4

REPORT INFORMATION
  Report Type: 
  Country: FR (occurrence: FR)
  Receive Date: 20110713
  Receipt Date: 20120919
  Transmission Date: 20130627
  Serious: Yes (Hospitalization, Disabling, Other)
  Sender: FDA-Public Use
  Company Number: FR-ELI_LILLY_AND_COMPANY-FR201107000184

PATIENT
  Age: 77 Year
  Sex: Female

DRUGS (1)
  1. FORSTEO [Suspect]
     Indication: OSTEOPOROSIS
     Dosage: 20 ug, qd
     Route: 058
     Dates: start: 20100313

REACTIONS (6)
  - Cerebrovascular accident [Recovered/Resolved with Sequelae]
  - Paralysis [Not Recovered/Not Resolved]
  - Fall [Unknown]
  - Aphonia [Unknown]
  - Dyslipidaemia [Unknown]
  - Haematoma [Unknown]
